FAERS Safety Report 6142023-0 (Version None)
Quarter: 2009Q2

REPORT INFORMATION
  Report Type: 
  Country: None (occurrence: None)
  Receive Date: 20090402
  Receipt Date: 20090318
  Transmission Date: 20091009
  Serious: Yes (Life-Threatening, Hospitalization, Disabling, Other)
  Sender: FDA-Public Use
  Company Number: CA-PFIZER INC-2009156397

PATIENT

DRUGS (31)
  1. NAPROXEN [Suspect]
     Indication: OSTEOARTHRITIS
     Dosage: UNK
     Route: 048
     Dates: start: 20071219, end: 20090101
  2. BLINDED *PLACEBO [Suspect]
     Indication: OSTEOARTHRITIS
     Dosage: UNK
     Route: 048
     Dates: start: 20071219, end: 20090101
  3. BLINDED CELECOXIB [Suspect]
     Indication: OSTEOARTHRITIS
     Dosage: UNK
     Route: 048
     Dates: start: 20071219, end: 20090101
  4. IBUPROFEN TABLETS [Suspect]
     Indication: OSTEOARTHRITIS
     Dosage: UNK
     Route: 048
     Dates: start: 20071219, end: 20090101
  5. NAPROXEN [Suspect]
     Dosage: UNK
     Route: 048
     Dates: start: 20071219, end: 20090101
  6. NAPROXEN [Suspect]
     Dosage: UNK
     Route: 048
     Dates: start: 20071219, end: 20080115
  7. BLINDED *PLACEBO [Suspect]
     Dosage: UNK
     Route: 048
     Dates: start: 20071219, end: 20080115
  8. BLINDED CELECOXIB [Suspect]
     Dosage: UNK
     Route: 048
     Dates: start: 20071219, end: 20080115
  9. IBUPROFEN TABLETS [Suspect]
     Dosage: UNK
     Route: 048
     Dates: start: 20071219, end: 20080115
  10. NAPROXEN [Suspect]
     Dosage: UNK
     Route: 048
     Dates: start: 20071219, end: 20080115
  11. NEXIUM [Concomitant]
     Dosage: 40 MG, 2X/DAY
     Route: 048
     Dates: start: 20080820, end: 20090101
  12. NEXIUM [Concomitant]
     Dosage: 20 MG, 2X/DAY
     Route: 048
     Dates: start: 20071219, end: 20080819
  13. ASPIRIN [Concomitant]
     Route: 048
     Dates: start: 20020912
  14. AMLODIPINE [Concomitant]
     Route: 048
     Dates: start: 20070123
  15. HYDROCHLOROTHIAZIDE [Concomitant]
     Route: 048
     Dates: start: 20050719
  16. RAMIPRIL [Concomitant]
     Dosage: UNK
     Route: 048
     Dates: start: 20000711
  17. ATORVASTATIN [Concomitant]
     Route: 048
     Dates: start: 20040714
  18. ACETAMINOPHEN [Concomitant]
     Dosage: UNK
     Route: 048
     Dates: start: 20080130
  19. LANTUS [Concomitant]
     Dosage: UNK
     Route: 058
     Dates: start: 20080418
  20. HUMALOG [Concomitant]
     Dosage: UNK
     Route: 058
     Dates: start: 20080418
  21. FLEXERIL [Concomitant]
     Route: 048
     Dates: start: 20081210
  22. TRAMADOL HYDROCHLORIDE [Concomitant]
     Route: 048
     Dates: start: 20081217
  23. SIMVASTATIN [Concomitant]
     Dosage: UNK
     Route: 048
  24. METOPROLOL [Concomitant]
     Dosage: UNK
     Route: 048
  25. ZINC GLUCONATE [Concomitant]
     Dosage: UNK
     Route: 048
  26. FUROSEMIDE [Concomitant]
     Dosage: UNK
     Route: 048
  27. WARFARIN [Concomitant]
     Dosage: UNK
     Route: 048
  28. OXAZEPAM [Concomitant]
     Dosage: UNK
     Route: 048
  29. ASCORBIC ACID [Concomitant]
     Dosage: UNK
     Route: 048
  30. VITAMIN D [Concomitant]
     Dosage: UNK
     Route: 048
  31. CLOPIDOGREL [Concomitant]
     Dosage: UNK
     Route: 048

REACTIONS (7)
  - ANAEMIA [None]
  - ATRIAL FLUTTER [None]
  - DIABETIC KETOACIDOSIS [None]
  - MYOCARDIAL INFARCTION [None]
  - PERIPHERAL ISCHAEMIA [None]
  - PNEUMONIA [None]
  - PULMONARY OEDEMA [None]
